FAERS Safety Report 13159172 (Version 3)
Quarter: 2017Q2

REPORT INFORMATION
  Report Type: Report from Study
  Country: US (occurrence: US)
  Receive Date: 20170127
  Receipt Date: 20170418
  Transmission Date: 20170830
  Serious: Yes (Death, Hospitalization, Other)
  Sender: FDA-Public Use
  Company Number: US-SA-2015SA142218

PATIENT
  Age: 25 Year
  Sex: Female

DRUGS (7)
  1. NORCO [Concomitant]
     Active Substance: ACETAMINOPHEN\HYDROCODONE BITARTRATE
     Dosage: 10/325
     Dates: start: 20150918, end: 20150918
  2. LEMTRADA [Suspect]
     Active Substance: ALEMTUZUMAB
     Indication: MULTIPLE SCLEROSIS
     Route: 042
     Dates: end: 20170127
  3. TYLENOL [Concomitant]
     Active Substance: ACETAMINOPHEN
     Indication: PREMEDICATION
     Dates: start: 20150918, end: 20150918
  4. TYLENOL [Concomitant]
     Active Substance: ACETAMINOPHEN
     Indication: PREMEDICATION
  5. LEMTRADA [Suspect]
     Active Substance: ALEMTUZUMAB
     Indication: MULTIPLE SCLEROSIS
     Route: 041
     Dates: start: 20150914, end: 20150918
  6. BENADRYL [Concomitant]
     Active Substance: DIPHENHYDRAMINE HYDROCHLORIDE
     Indication: PREMEDICATION
     Route: 042
     Dates: start: 20150918, end: 20150918
  7. BENADRYL [Concomitant]
     Active Substance: DIPHENHYDRAMINE HYDROCHLORIDE
     Indication: PREMEDICATION

REACTIONS (16)
  - Headache [Recovered/Resolved]
  - Incision site infection [Recovered/Resolved]
  - Gallbladder polyp [Recovered/Resolved]
  - Back pain [Not Recovered/Not Resolved]
  - Wound [Recovered/Resolved]
  - Pain [Unknown]
  - Cholecystitis infective [Recovered/Resolved]
  - Nasal pruritus [Recovering/Resolving]
  - Vision blurred [Recovered/Resolved]
  - Staphylococcal infection [Recovered/Resolved]
  - Death [Fatal]
  - Chest pain [Not Recovered/Not Resolved]
  - Dizziness [Recovered/Resolved]
  - Cough [Recovered/Resolved]
  - Hypoaesthesia [Recovered/Resolved]
  - Paraesthesia [Recovered/Resolved]

NARRATIVE: CASE EVENT DATE: 201509
